FAERS Safety Report 8537444-2 (Version None)
Quarter: 2012Q3

REPORT INFORMATION
  Report Type: 
  Country: None (occurrence: None)
  Receive Date: 20120725
  Receipt Date: 20120720
  Transmission Date: 20120928
  Serious: Yes (Other)
  Sender: FDA-Public Use
  Company Number: KR-ABBOTT-11P-090-0716274-00

PATIENT
  Age: 31 Year
  Sex: Female

DRUGS (6)
  1. HALOPERIDOL [Concomitant]
     Indication: PRODUCT USED FOR UNKNOWN INDICATION
  2. VALPROATE SODIUM [Suspect]
     Dosage: DAILY
     Dates: end: 20081202
  3. OLANZAPINE [Suspect]
     Dates: start: 20080101, end: 20080101
  4. VALPROATE SODIUM [Suspect]
     Indication: SCHIZOPHRENIA
     Dosage: DAILY
     Dates: start: 20080101
  5. OLANZAPINE [Suspect]
     Indication: SCHIZOPHRENIA
     Dosage: DAILY
  6. CLOZAPINE [Suspect]
     Indication: SCHIZOPHRENIA
     Dosage: DAILY
     Route: 065
     Dates: start: 20081113, end: 20081121

REACTIONS (2)
  - NEUTROPENIA [None]
  - GRAND MAL CONVULSION [None]
